FAERS Safety Report 4310800-4 (Version None)
Quarter: 2004Q1

REPORT INFORMATION
  Report Type: 
  Country: None (occurrence: None)
  Receive Date: 20040303
  Receipt Date: 20040223
  Transmission Date: 20041129
  Serious: Yes (Hospitalization)
  Sender: FDA-Public Use
  Company Number: US-JNJFOC-20040205150

PATIENT
  Age: 61 Year
  Sex: Female

DRUGS (10)
  1. REMICADE [Suspect]
     Indication: RHEUMATOID ARTHRITIS
     Dosage: INTRAVENOUS
     Route: 042
     Dates: start: 20010115
  2. METHOTREXATE [Concomitant]
  3. FOSAMAX [Concomitant]
  4. DETROL [Concomitant]
  5. FOLIC ACID [Concomitant]
  6. ESTRATEST [Concomitant]
  7. PROVERA [Concomitant]
  8. OXYCONTIN [Concomitant]
  9. MULTIVITAMIN (MULTIVITAMINS) [Concomitant]
  10. CORAL CALCIUM (CALCIUM) [Concomitant]

REACTIONS (3)
  - ADRENAL INSUFFICIENCY [None]
  - NAUSEA [None]
  - VOMITING [None]
